FAERS Safety Report 25114179 (Version 1)
Quarter: 2025Q1

REPORT INFORMATION
  Report Type: Spontaneous
  Country: US (occurrence: US)
  Receive Date: 20250324
  Receipt Date: 20250324
  Transmission Date: 20250408
  Serious: No
  Sender: AMGEN
  Company Number: US-AMGEN-USASP2025054272

PATIENT
  Sex: Female

DRUGS (1)
  1. REPATHA [Suspect]
     Active Substance: EVOLOCUMAB
     Indication: Blood cholesterol abnormal
     Route: 058

REACTIONS (4)
  - Influenza like illness [Unknown]
  - Pleural effusion [Unknown]
  - Dyspnoea [Unknown]
  - Nasopharyngitis [Unknown]
